FAERS Safety Report 6436349-0 (Version None)
Quarter: 2009Q4

REPORT INFORMATION
  Report Type: 
  Country: None (occurrence: None)
  Receive Date: 20091111
  Receipt Date: 20091028
  Transmission Date: 20100525
  Serious: Yes (Hospitalization)
  Sender: FDA-Public Use
  Company Number: PHHY2009VE46832

PATIENT
  Age: 77 Year
  Sex: Female

DRUGS (7)
  1. ACLASTA [Suspect]
     Indication: OSTEOPENIA
     Dosage: 5 MG/ YEAR
     Dates: start: 20090309
  2. DIOVAN [Concomitant]
     Dosage: 160 MG, UNK
     Route: 048
     Dates: start: 20040101
  3. CALCIUM [Concomitant]
     Dosage: ONCE A DAY
  4. LOVAZA [Concomitant]
     Dosage: ONCE A DAY
  5. GLUCOSAMINE [Concomitant]
     Route: 048
  6. CHONDROITIN [Concomitant]
     Route: 048
  7. METHYLSULFONYLMETHANE [Concomitant]
     Route: 048

REACTIONS (4)
  - DISCOMFORT [None]
  - FALL [None]
  - FEMUR FRACTURE [None]
  - SURGERY [None]
